FAERS Safety Report 4398837-0 (Version None)
Quarter: 2004Q3

REPORT INFORMATION
  Report Type: 
  Country: None (occurrence: None)
  Receive Date: 20040712
  Receipt Date: 20040622
  Transmission Date: 20050211
  Serious: Yes (Hospitalization)
  Sender: FDA-Public Use
  Company Number: US_0406103834

PATIENT
  Age: 32 Year
  Sex: Female
  Weight: 56 kg

DRUGS (41)
  1. XIGRIS [Suspect]
     Indication: SEPSIS
     Dosage: 24 UG/KG/HR
     Dates: start: 20021019
  2. VANCOMYCIN [Concomitant]
  3. TEQUIN [Concomitant]
  4. TOBRAMYCIN [Concomitant]
  5. DOPAMINE HCL [Concomitant]
  6. PRIMAXIN [Concomitant]
  7. MIRIM [Concomitant]
  8. XOPENEX [Concomitant]
  9. PNEUMOVAX 23 [Concomitant]
  10. ZOSYN [Concomitant]
  11. TEQUIN [Concomitant]
  12. VALIUM [Concomitant]
  13. ANZEMET (DOLASETRON MESILATE) [Concomitant]
  14. TPN [Concomitant]
  15. REGLAN [Concomitant]
  16. BACTROBAN TOPICAL OINTMENT (MUPIROCIN) [Concomitant]
  17. PHENERGAN [Concomitant]
  18. CLARINEX [Concomitant]
  19. LOTRISONE [Concomitant]
  20. NASONEX [Concomitant]
  21. PREVACID [Concomitant]
  22. DARVOCET-N 100 [Concomitant]
  23. FLONASE [Concomitant]
  24. INTRALIPID [Concomitant]
  25. FLAGYL [Concomitant]
  26. PEPCID [Concomitant]
  27. ATIVAN [Concomitant]
  28. LEVOPHED [Concomitant]
  29. EPINEPHRINE [Concomitant]
  30. DOPAMINE HCL [Concomitant]
  31. TYLENOL [Concomitant]
  32. INSULIN [Concomitant]
  33. DEXTROSE [Concomitant]
  34. POTASSIUM CHLORIDE [Concomitant]
  35. PROTONIX [Concomitant]
  36. REGULAR INSULIN [Concomitant]
  37. DECADRON [Concomitant]
  38. DIFLUCAN [Concomitant]
  39. L-EMENTAL [Concomitant]
  40. MORPHINE SULFATE [Concomitant]
  41. CHEOCIN (CLINDAMYCIN HYDROCHLORIDE) [Concomitant]

REACTIONS (8)
  - ATELECTASIS [None]
  - CHOLECYSTITIS [None]
  - CHOLELITHIASIS [None]
  - LEUKOCYTOSIS [None]
  - LIVER FUNCTION TEST ABNORMAL [None]
  - MULTI-ORGAN FAILURE [None]
  - PANCREATITIS [None]
  - PLATELET COUNT INCREASED [None]
